FAERS Safety Report 12852397 (Version 1)
Quarter: 2016Q4

REPORT INFORMATION
  Report Type: Spontaneous
  Country: EE (occurrence: EE)
  Receive Date: 20161017
  Receipt Date: 20161017
  Transmission Date: 20170207
  Serious: Yes (Death, Life-Threatening, Hospitalization)
  Sender: FDA-Public Use
  Company Number: EE-ORION CORPORATION ORION PHARMA-16_00001954

PATIENT
  Age: 71 Year
  Sex: Female

DRUGS (7)
  1. TREXAN [Suspect]
     Active Substance: METHOTREXATE SODIUM
     Indication: RHEUMATOID ARTHRITIS
     Route: 048
     Dates: start: 1995, end: 20160704
  2. ARAVA [Suspect]
     Active Substance: LEFLUNOMIDE
     Indication: RHEUMATOID ARTHRITIS
     Dosage: EVERY OVER DAY
     Route: 048
     Dates: start: 2011, end: 20160704
  3. MELOXICAM. [Concomitant]
     Active Substance: MELOXICAM
     Indication: PAIN
     Route: 048
  4. ATENOLOL-RATIOPHARM [Concomitant]
     Indication: HYPERTENSION
     Dosage: STRENGTH: 50 MG
     Route: 048
  5. CORINFAR RETARD [Concomitant]
     Indication: HYPERTENSION
     Route: 048
  6. VALSARTAN. [Concomitant]
     Active Substance: VALSARTAN
     Indication: HYPERTENSION
     Route: 048
  7. ROACTEMRA [Suspect]
     Active Substance: TOCILIZUMAB
     Indication: RHEUMATOID ARTHRITIS
     Dosage: CYCLICAL
     Route: 042
     Dates: start: 20130305, end: 20160602

REACTIONS (3)
  - Wound drainage [Unknown]
  - Pelvic fracture [Unknown]
  - Enterobacter sepsis [Fatal]

NARRATIVE: CASE EVENT DATE: 20160706
